FAERS Safety Report 24384387 (Version 1)
Quarter: 2024Q4

REPORT INFORMATION
  Report Type: Report from Study
  Country: MX (occurrence: MX)
  Receive Date: 20241001
  Receipt Date: 20241001
  Transmission Date: 20250114
  Serious: Yes (Other)
  Sender: INCYTE
  Company Number: MX-002147023-NVSC2024MX174082

PATIENT

DRUGS (8)
  1. RUXOLITINIB [Suspect]
     Active Substance: RUXOLITINIB
     Indication: Primary myelofibrosis
     Dosage: UNK (ONE MONTH AGO)
     Route: 048
  2. RUXOLITINIB [Suspect]
     Active Substance: RUXOLITINIB
     Dosage: 1 DOSAGE FORM, QD (15 MG)
     Route: 048
     Dates: start: 202407, end: 202408
  3. INTERFERON ALFA NOS [Concomitant]
     Active Substance: INTERFERON ALFA-2A OR INTERFERON ALFA-2B
     Indication: Product used for unknown indication
     Dosage: EVERY 10 DAYS
     Route: 065
  4. DARBEPOETIN ALFA [Concomitant]
     Active Substance: DARBEPOETIN ALFA
     Indication: Product used for unknown indication
     Dosage: EVERY 15 DAYS
     Route: 065
  5. DARBEPOETIN ALFA [Concomitant]
     Active Substance: DARBEPOETIN ALFA
     Dosage: 1 DOSAGE FORM, EVERY 15 DAYS (AMPOULE)
     Route: 058
  6. DANAZOL [Concomitant]
     Active Substance: DANAZOL
     Indication: Haemoglobin decreased
     Dosage: 1 DOSAGE FORM, QD
     Route: 048
  7. DANAZOL [Concomitant]
     Active Substance: DANAZOL
     Dosage: 100 MG, Q12H
     Route: 048
  8. ASPIRIN [Concomitant]
     Active Substance: ASPIRIN
     Indication: Product used for unknown indication
     Dosage: 100 MG, QD
     Route: 065

REACTIONS (18)
  - Pruritus [Not Recovered/Not Resolved]
  - Cytopenia [Unknown]
  - Dizziness [Recovered/Resolved]
  - Off label use [Unknown]
  - Headache [Recovered/Resolved]
  - Haematocrit abnormal [Unknown]
  - Haemoglobin abnormal [Unknown]
  - Bone pain [Not Recovered/Not Resolved]
  - Irritability [Unknown]
  - Chest pain [Unknown]
  - Abdominal pain upper [Not Recovered/Not Resolved]
  - Scratch [Unknown]
  - Platelet count abnormal [Unknown]
  - Somnolence [Not Recovered/Not Resolved]
  - Mobility decreased [Recovered/Resolved]
  - Hypoacusis [Not Recovered/Not Resolved]
  - Visual impairment [Not Recovered/Not Resolved]
  - Asthenia [Recovered/Resolved]

NARRATIVE: CASE EVENT DATE: 20240701
